FAERS Safety Report 5133593-X (Version None)
Quarter: 2006Q4

REPORT INFORMATION
  Report Type: 
  Country: None (occurrence: None)
  Receive Date: 20061024
  Receipt Date: 20061011
  Transmission Date: 20070319
  Serious: Yes (Hospitalization)
  Sender: FDA-Public Use
  Company Number: PHBS2006JP16023

PATIENT
  Age: 50 Year
  Sex: Male

DRUGS (1)
  1. CYCLOSPORINE [Suspect]
     Indication: COLITIS ULCERATIVE
     Route: 065
     Dates: start: 20050101

REACTIONS (2)
  - MEGACOLON [None]
  - PNEUMOCYSTIS JIROVECI PNEUMONIA [None]
